FAERS Safety Report 9713959 (Version 1)
Quarter: 2013Q4

REPORT INFORMATION
  Report Type: Spontaneous
  Country: US (occurrence: US)
  Receive Date: 20131126
  Receipt Date: 20131126
  Transmission Date: 20140711
  Serious: No
  Sender: FDA-Public Use
  Company Number: US-GILEAD-2008-0018306

PATIENT
  Sex: Male
  Weight: 72.57 kg

DRUGS (11)
  1. LETAIRIS [Suspect]
     Indication: PULMONARY ARTERIAL HYPERTENSION
     Route: 048
     Dates: start: 20080922, end: 20080926
  2. AVODART [Concomitant]
  3. CELEXA [Concomitant]
  4. REVATIO [Concomitant]
  5. CELEBREX [Concomitant]
  6. LASIX [Concomitant]
  7. COUMADIN [Concomitant]
  8. SPIRONOLACTONE [Concomitant]
  9. DIGOXIN [Concomitant]
  10. FLOMAX [Concomitant]
  11. OXYGEN [Concomitant]

REACTIONS (4)
  - Heart rate increased [None]
  - Fluid retention [None]
  - Dyspnoea [None]
  - Nasal congestion [None]
